FAERS Safety Report 20357854 (Version 5)
Quarter: 2022Q2

REPORT INFORMATION
  Report Type: Spontaneous
  Country: US (occurrence: US)
  Receive Date: 20220120
  Receipt Date: 20220509
  Transmission Date: 20220721
  Serious: Yes (Hospitalization, Other)
  Sender: FDA-Public Use
  Company Number: US-UCBSA-2022001439

PATIENT
  Age: 32 Year
  Sex: Female
  Weight: 58 kg

DRUGS (2)
  1. CIMZIA [Suspect]
     Active Substance: CERTOLIZUMAB PEGOL
     Indication: Noninfective chorioretinitis
     Dosage: 400 MILLIGRAM, EV 4 WEEKS
     Route: 058
     Dates: start: 202010, end: 20220116
  2. CIMZIA [Suspect]
     Active Substance: CERTOLIZUMAB PEGOL
     Indication: Off label use

REACTIONS (8)
  - Adverse event [Unknown]
  - Migraine [Unknown]
  - Infection [Unknown]
  - Headache [Unknown]
  - Off label use [Unknown]
  - Therapy interrupted [Unknown]
  - Product availability issue [Unknown]
  - Drug ineffective [Unknown]

NARRATIVE: CASE EVENT DATE: 20201001
